FAERS Safety Report 7441845-3 (Version None)
Quarter: 2011Q2

REPORT INFORMATION
  Report Type: 
  Country: None (occurrence: None)
  Receive Date: 20110420
  Receipt Date: 20110405
  Transmission Date: 20111010
  Serious: Yes (Disabling)
  Sender: FDA-Public Use
  Company Number: AUR-APL-2011-01129

PATIENT
  Age: 76 Year
  Sex: Female

DRUGS (9)
  1. ASPIRIN [Concomitant]
  2. ATORVASTATIN [Concomitant]
  3. ADCAL-D3 [Concomitant]
  4. ALENDRONATE SODIUM [Suspect]
     Indication: OSTEOPOROSIS
     Dosage: 70MG-WEEKLY-ORAL
     Route: 048
     Dates: start: 20100301
  5. SENNA-MINT WAF [Concomitant]
  6. BISACODYL [Concomitant]
  7. ACETAMINOPHEN AND CODEINE PHOSPHATE [Concomitant]
  8. NITRAZEPAM [Concomitant]
  9. OMEPRAZOLE [Concomitant]

REACTIONS (4)
  - MOBILITY DECREASED [None]
  - OEDEMA PERIPHERAL [None]
  - GAIT DISTURBANCE [None]
  - ERYTHEMA [None]
